FAERS Safety Report 5206905-6 (Version None)
Quarter: 2007Q1

REPORT INFORMATION
  Report Type: 
  Country: None (occurrence: None)
  Receive Date: 20070105
  Receipt Date: 20070105
  Transmission Date: 20070707
  Serious: Yes (Hospitalization)
  Sender: FDA-Public Use
  Company Number: None

PATIENT
  Age: 49 Year
  Sex: Male
  Weight: 75.4 kg

DRUGS (7)
  1. SULFAMETHOXAZOLE AND TRIMETHOPRIM [Suspect]
     Indication: BACTERIAL INFECTION
     Dosage: 1600/320MG TID, PO.
     Route: 048
     Dates: start: 20060821, end: 20060830
  2. AMOXICILLIN + CLAVULANATE POTASSIUM [Concomitant]
  3. CYCLOSPORINE [Concomitant]
  4. GANCICLOVIR [Concomitant]
  5. METOPROLOL SUCCINATE [Concomitant]
  6. ESOMEPRAZOLE MAGNESIUM [Concomitant]
  7. AMLODIPINE [Concomitant]

REACTIONS (2)
  - BLOOD CREATININE INCREASED [None]
  - HYPERKALAEMIA [None]
